FAERS Safety Report 15483008 (Version 1)
Quarter: 2018Q4

REPORT INFORMATION
  Report Type: Spontaneous
  Country: US (occurrence: US)
  Receive Date: 20181003
  Receipt Date: 20181003
  Transmission Date: 20190205
  Serious: Yes (Other)
  Sender: FDA-Public Use
  Company Number: None

PATIENT
  Age: 42 Year
  Sex: Female
  Weight: 78.75 kg

DRUGS (1)
  1. MONTELUKAST [Suspect]
     Active Substance: MONTELUKAST SODIUM
     Indication: PRODUCT USED FOR UNKNOWN INDICATION
     Dosage: ?          QUANTITY:30 TABLET(S);?
     Route: 048

REACTIONS (17)
  - Dysphonia [None]
  - Vomiting [None]
  - Muscle spasms [None]
  - Product formulation issue [None]
  - Product dispensing error [None]
  - Weight increased [None]
  - Dyspnoea [None]
  - Unevaluable event [None]
  - Migraine [None]
  - Influenza like illness [None]
  - Peripheral swelling [None]
  - Dizziness [None]
  - Manufacturing production issue [None]
  - Recalled product administered [None]
  - Chest pain [None]
  - Urinary incontinence [None]
  - Cough [None]
